FAERS Safety Report 18271739 (Version 1)
Quarter: 2020Q3

REPORT INFORMATION
  Report Type: Spontaneous
  Country: FR (occurrence: FR)
  Receive Date: 20200916
  Receipt Date: 20200916
  Transmission Date: 20201103
  Serious: Yes (Other)
  Sender: FDA-Public Use
  Company Number: FR-CADILA HEALTHCARE LIMITED-FR-ZYDUS-021662

PATIENT

DRUGS (2)
  1. SERTRALINE [Suspect]
     Active Substance: SERTRALINE HYDROCHLORIDE
     Indication: ANOREXIA NERVOSA
     Dosage: 50 MILLIGRAM,(INTERVAL :1 DAYS)
     Route: 048
     Dates: start: 20161102, end: 20171107
  2. PRAZEPAM [Concomitant]
     Active Substance: PRAZEPAM
     Indication: ANOREXIA NERVOSA
     Route: 048
     Dates: start: 201610, end: 201706

REACTIONS (1)
  - Transaminases increased [Recovered/Resolved]

NARRATIVE: CASE EVENT DATE: 20161108
